FAERS Safety Report 26142377 (Version 1)
Quarter: 2025Q4

REPORT INFORMATION
  Report Type: Report from Study
  Country: JP (occurrence: JP)
  Receive Date: 20251210
  Receipt Date: 20251210
  Transmission Date: 20260118
  Serious: Yes (Other)
  Sender: JOHNSON AND JOHNSON
  Company Number: JP-JNJFOC-20251212224

PATIENT

DRUGS (3)
  1. EDURANT [Suspect]
     Active Substance: RILPIVIRINE HYDROCHLORIDE
     Indication: HIV infection
     Dosage: DOSE UNKNOWN
     Route: 048
  2. RILPIVIRINE [Suspect]
     Active Substance: RILPIVIRINE
     Indication: HIV infection
     Dosage: DOSE UNKNOWN
     Route: 030
  3. CABOTEGRAVIR [Suspect]
     Active Substance: CABOTEGRAVIR
     Indication: HIV infection
     Dosage: DOSE UNKNOWN
     Route: 030

REACTIONS (5)
  - Hepatitis B [Unknown]
  - Blood HIV RNA increased [Unknown]
  - Injection site pain [Unknown]
  - Malaise [Unknown]
  - Treatment noncompliance [Unknown]
